FAERS Safety Report 7102704-9 (Version None)
Quarter: 2010Q4

REPORT INFORMATION
  Report Type: 
  Country: None (occurrence: None)
  Receive Date: 20101115
  Receipt Date: 20101026
  Transmission Date: 20110411
  Serious: Yes (Disabling, Other)
  Sender: FDA-Public Use
  Company Number: PHHY2010US62140

PATIENT
  Sex: Female

DRUGS (21)
  1. RECLAST [Suspect]
     Indication: OSTEOPOROSIS
     Dosage: 5 MG
     Route: 042
     Dates: start: 20100816, end: 20100816
  2. PREDNISONE [Suspect]
  3. AMITRIPTYLINE HCL [Suspect]
     Indication: SLEEP DISORDER
     Dosage: 10 MG, QD
     Route: 048
  4. BENADRYL [Suspect]
     Dosage: UNK
  5. LYRICA [Suspect]
  6. ALEVE (CAPLET) [Suspect]
  7. ADVIL [Suspect]
  8. ANXIOLYTICS [Concomitant]
     Indication: ANXIETY
  9. ZOLPIDEM [Concomitant]
     Indication: INSOMNIA
     Dosage: 10 MG, QD
     Route: 048
  10. DENAVIR [Concomitant]
     Dosage: UNK
     Route: 061
  11. NIASPAN [Concomitant]
     Dosage: 500 MG, QD
     Route: 048
  12. ZETIA [Concomitant]
     Dosage: 10 MG, QD
     Route: 048
  13. SERTRALINE HYDROCHLORIDE [Concomitant]
     Indication: ANXIETY
     Dosage: 50 MG, QD
     Route: 048
  14. OMEPRAZOLE [Concomitant]
     Indication: DYSPEPSIA
     Dosage: 20 MG, QD
     Route: 048
  15. PROMETHAZINE [Concomitant]
     Indication: NAUSEA
     Dosage: 25 MG, PRN
     Route: 048
  16. GABAPENTIN [Concomitant]
     Dosage: 100 MG, TID
     Route: 048
  17. CALCIUM [Concomitant]
     Dosage: 500 MG, BID
     Route: 048
  18. VITAMIN D [Concomitant]
     Dosage: 125 UNITS
  19. FISH OIL [Concomitant]
     Dosage: 1000 MG, TID
  20. LORAZEPAM [Concomitant]
     Dosage: 0.5 MG, TID
     Route: 048
  21. METH [Concomitant]

REACTIONS (11)
  - ALOPECIA [None]
  - BLOOD MAGNESIUM INCREASED [None]
  - BURNING SENSATION [None]
  - HYPOAESTHESIA [None]
  - INABILITY TO CRAWL [None]
  - MUSCLE SPASMS [None]
  - MUSCLE TWITCHING [None]
  - MYALGIA [None]
  - NEURALGIA [None]
  - PAIN [None]
  - PARAESTHESIA [None]
